FAERS Safety Report 14826505 (Version 2)
Quarter: 2019Q1

REPORT INFORMATION
  Report Type: Report from Study
  Country: AR (occurrence: AR)
  Receive Date: 20180430
  Receipt Date: 20190205
  Transmission Date: 20190417
  Serious: Yes (Other)
  Sender: FDA-Public Use
  Company Number: PHHY2018AR044270

PATIENT
  Sex: Female

DRUGS (3)
  1. AFINITOR [Suspect]
     Active Substance: EVEROLIMUS
     Dosage: 5 MG, QD
     Route: 065
  2. METFORMIN [Concomitant]
     Active Substance: METFORMIN HYDROCHLORIDE
     Indication: BLOOD GLUCOSE INCREASED
     Route: 065
  3. AFINITOR [Suspect]
     Active Substance: EVEROLIMUS
     Indication: RENAL CANCER
     Dosage: 10 MG, QD
     Route: 065
     Dates: start: 20160801, end: 201801

REACTIONS (16)
  - Neoplasm progression [Unknown]
  - Lung disorder [Not Recovered/Not Resolved]
  - Rash [Recovered/Resolved]
  - Blood glucose increased [Unknown]
  - Metastases to the mediastinum [Unknown]
  - Thirst [Recovered/Resolved]
  - Malignant neoplasm progression [Not Recovered/Not Resolved]
  - Feeling hot [Recovered/Resolved]
  - Drug intolerance [Unknown]
  - Blood cholesterol increased [Unknown]
  - Hypersensitivity [Recovered/Resolved]
  - Renal cancer [Not Recovered/Not Resolved]
  - Urticaria [Unknown]
  - Memory impairment [Unknown]
  - Concomitant disease aggravated [Unknown]
  - Pruritus [Recovered/Resolved]

NARRATIVE: CASE EVENT DATE: 2018
